FAERS Safety Report 13690795 (Version 1)
Quarter: 2017Q2

REPORT INFORMATION
  Report Type: Spontaneous
  Country: US (occurrence: US)
  Receive Date: 20170626
  Receipt Date: 20170626
  Transmission Date: 20170830
  Serious: No
  Sender: FDA-Public Use
  Company Number: US-DSJP-DSU-2016-134699

PATIENT
  Sex: Female

DRUGS (4)
  1. WELCHOL [Suspect]
     Active Substance: COLESEVELAM HYDROCHLORIDE
     Indication: FLATULENCE
  2. WELCHOL [Suspect]
     Active Substance: COLESEVELAM HYDROCHLORIDE
     Indication: BLOOD CHOLESTEROL INCREASED
  3. WELCHOL [Suspect]
     Active Substance: COLESEVELAM HYDROCHLORIDE
     Indication: NAUSEA
  4. WELCHOL [Suspect]
     Active Substance: COLESEVELAM HYDROCHLORIDE
     Indication: GLUCOSE TOLERANCE IMPAIRED
     Dosage: 625 MG, UNK
     Route: 048
     Dates: start: 201609

REACTIONS (2)
  - Off label use [Not Recovered/Not Resolved]
  - No adverse event [Not Recovered/Not Resolved]

NARRATIVE: CASE EVENT DATE: 201609
